FAERS Safety Report 8375230 (Version 2)
Quarter: 2013Q1

REPORT INFORMATION
  Report Type: Report from Study
  Country: US (occurrence: US)
  Receive Date: 20120129
  Receipt Date: 20130129
  Transmission Date: 20140127
  Serious: No
  Sender: FDA-Public Use
  Company Number: US-ABBOTT-11P-163-0887798-00

PATIENT
  Age: 27 Year
  Sex: Female

DRUGS (2)
  1. HUMIRA 40 MG/0.8 ML PEN [Suspect]
     Indication: SARCOIDOSIS
     Dates: start: 20111215
  2. PREDNISONE [Concomitant]
     Indication: SARCOIDOSIS
     Route: 048
     Dates: start: 201101

REACTIONS (3)
  - Dizziness [Recovered/Resolved]
  - Syncope [Unknown]
  - Nausea [Not Recovered/Not Resolved]
